FAERS Safety Report 9614452 (Version 1)
Quarter: 2013Q4

REPORT INFORMATION
  Report Type: Spontaneous
  Country: US (occurrence: US)
  Receive Date: 20131011
  Receipt Date: 20131011
  Transmission Date: 20140711
  Serious: Yes (Other)
  Sender: FDA-Public Use
  Company Number: US-ACCORD-019804

PATIENT
  Age: 28 Year
  Sex: Female

DRUGS (8)
  1. TACROLIMUS [Suspect]
     Indication: LUPUS NEPHRITIS
     Dosage: 3 MG ONCE IN MORNING AND 2 MG ONCE IN EVENING
  2. MYCOPHENOLATE MOFETIL [Suspect]
     Indication: LUPUS NEPHRITIS
  3. CYCLOPHOSPHAMIDE [Suspect]
     Indication: LUPUS NEPHRITIS
  4. AZATHIOPRINE [Suspect]
     Indication: LUPUS NEPHRITIS
  5. RITUXIMAB [Suspect]
     Indication: LUPUS NEPHRITIS
  6. PREDNISONE [Suspect]
     Indication: LUPUS NEPHRITIS
     Dosage: 60 MG AT TIME OF TACROLIMUS ADDITION
  7. HYDROXYCHLOROQUINE [Suspect]
     Indication: LUPUS NEPHRITIS
  8. LISINOPRIL [Concomitant]

REACTIONS (3)
  - Otitis externa [Unknown]
  - Off label use [Unknown]
  - Treatment failure [Unknown]
